FAERS Safety Report 5352474-X (Version None)
Quarter: 2007Q2

REPORT INFORMATION
  Report Type: 
  Country: None (occurrence: None)
  Receive Date: 20070611
  Receipt Date: 20070604
  Transmission Date: 20071010
  Serious: Yes (Other)
  Sender: FDA-Public Use
  Company Number: B0470339A

PATIENT
  Age: 19 Year
  Sex: Female

DRUGS (2)
  1. RELENZA [Suspect]
     Indication: INFLUENZA
     Dosage: 10MG TWICE PER DAY
     Route: 055
     Dates: start: 20070507, end: 20070511
  2. CALONAL [Concomitant]
     Indication: INFLUENZA
     Route: 048
     Dates: start: 20070507

REACTIONS (7)
  - ABNORMAL BEHAVIOUR [None]
  - DIZZINESS POSTURAL [None]
  - HYPERTHERMIA [None]
  - HYPERVENTILATION [None]
  - LOSS OF CONSCIOUSNESS [None]
  - NAUSEA [None]
  - PALLOR [None]
